FAERS Safety Report 6009841-0 (Version None)
Quarter: 2008Q4

REPORT INFORMATION
  Report Type: 
  Country: None (occurrence: None)
  Receive Date: 20081217
  Receipt Date: 20081209
  Transmission Date: 20090506
  Serious: No
  Sender: FDA-Public Use
  Company Number: US-BAYER-200840590NA

PATIENT
  Age: 35 Year
  Sex: Female
  Weight: 68 kg

DRUGS (1)
  1. YAZ [Suspect]
     Indication: PREMENSTRUAL SYNDROME
     Dosage: TOTAL DAILY DOSE: 1 DF
     Route: 048
     Dates: start: 20081026, end: 20081104

REACTIONS (3)
  - ABNORMAL WITHDRAWAL BLEEDING [None]
  - FATIGUE [None]
  - MENTAL STATUS CHANGES [None]
